FAERS Safety Report 6968499-4 (Version None)
Quarter: 2010Q3

REPORT INFORMATION
  Report Type: 
  Country: None (occurrence: None)
  Receive Date: 20100903
  Receipt Date: 20100903
  Transmission Date: 20110219
  Serious: Yes (Life-Threatening, Hospitalization, Disabling)
  Sender: FDA-Public Use
  Company Number: None

PATIENT
  Age: 20 Year
  Sex: Female
  Weight: 49.8957 kg

DRUGS (2)
  1. NUVARING [Suspect]
     Indication: CONTRACEPTION
     Dosage: 1 RING ONCE A MONTH
     Dates: start: 20100618, end: 20100713
  2. COUMADIN [Concomitant]

REACTIONS (7)
  - DISCOMFORT [None]
  - LOSS OF EMPLOYMENT [None]
  - LUNG DISORDER [None]
  - PAIN [None]
  - PULMONARY FIBROSIS [None]
  - RESPIRATORY DISORDER [None]
  - THROMBOSIS [None]
